FAERS Safety Report 19792922 (Version 1)
Quarter: 2021Q3

REPORT INFORMATION
  Report Type: Spontaneous
  Country: CN (occurrence: CN)
  Receive Date: 20210906
  Receipt Date: 20210906
  Transmission Date: 20211014
  Serious: Yes (Other)
  Sender: FDA-Public Use
  Company Number: CN-PFIZER INC-202101098686

PATIENT
  Age: 33 Year
  Sex: Female
  Weight: 44 kg

DRUGS (7)
  1. CAMPTO [Suspect]
     Active Substance: IRINOTECAN
     Indication: COLON CANCER
  2. CAMPTO [Suspect]
     Active Substance: IRINOTECAN
     Indication: CHEMOTHERAPY
     Dosage: 280.000 MG, 1X/DAY
     Route: 041
     Dates: start: 20210802, end: 20210802
  3. FLUOROURACIL. [Suspect]
     Active Substance: FLUOROURACIL
     Indication: CHEMOTHERAPY
     Dosage: 4600.000 MG, 1X/DAY
     Route: 041
     Dates: start: 20210802, end: 20210802
  4. SODIUM CHLORIDE. [Concomitant]
     Active Substance: SODIUM CHLORIDE
     Indication: VEHICLE SOLUTION USE
     Dosage: 250.000 ML, 1X/DAY
     Route: 041
     Dates: start: 20210802, end: 20210802
  5. SODIUM CHLORIDE. [Concomitant]
     Active Substance: SODIUM CHLORIDE
     Dosage: 120.000 ML, 1X/DAY
     Route: 041
     Dates: start: 20210802, end: 20210802
  6. FLUOROURACIL. [Suspect]
     Active Substance: FLUOROURACIL
     Indication: COLON CANCER
  7. FOSAPREPITANT DIMEGLUMINE. [Concomitant]
     Active Substance: FOSAPREPITANT DIMEGLUMINE
     Indication: PROPHYLAXIS OF NAUSEA AND VOMITING
     Dosage: UNK
     Dates: start: 20210802, end: 20210802

REACTIONS (1)
  - Gastrointestinal disorder [Recovering/Resolving]

NARRATIVE: CASE EVENT DATE: 20210803
